FAERS Safety Report 8009533-2 (Version None)
Quarter: 2011Q4

REPORT INFORMATION
  Report Type: 
  Country: None (occurrence: None)
  Receive Date: 20111227
  Receipt Date: 20111220
  Transmission Date: 20120403
  Serious: Yes (Death, Life-Threatening, Hospitalization)
  Sender: FDA-Public Use
  Company Number: SE-ASTRAZENECA-2011SE74281

PATIENT
  Age: 20619 Day
  Sex: Male

DRUGS (8)
  1. NAPROXEN [Suspect]
     Route: 065
  2. CRESTOR [Suspect]
     Route: 048
     Dates: start: 20111003, end: 20111029
  3. METOPROLOL ACTAVIS [Suspect]
     Route: 065
  4. SULFASALAZINE [Concomitant]
  5. HUMIRA [Concomitant]
  6. SIMPONI [Suspect]
     Route: 065
     Dates: start: 20111003
  7. REMICADE [Concomitant]
     Dates: start: 20080101
  8. ENBREL [Concomitant]

REACTIONS (2)
  - CARDIAC FAILURE ACUTE [None]
  - CHOLECYSTITIS [None]
